FAERS Safety Report 6468271-8 (Version None)
Quarter: 2009Q4

REPORT INFORMATION
  Report Type: 
  Country: None (occurrence: None)
  Receive Date: 20091130
  Receipt Date: 20091117
  Transmission Date: 20100525
  Serious: Yes (Other)
  Sender: FDA-Public Use
  Company Number: 2007-01863

PATIENT
  Age: 62 Year
  Sex: Female
  Weight: 43 kg

DRUGS (8)
  1. VELCADE [Suspect]
     Indication: MULTIPLE MYELOMA
     Dosage: 1.7 MG, INTRAVENOUS; 1.20 MG, INTRAVENOUS; 0.8MG, INTRAVENOUS
     Route: 042
     Dates: start: 20070521, end: 20070531
  2. VELCADE [Suspect]
     Indication: MULTIPLE MYELOMA
     Dosage: 1.7 MG, INTRAVENOUS; 1.20 MG, INTRAVENOUS; 0.8MG, INTRAVENOUS
     Route: 042
     Dates: start: 20070702, end: 20070702
  3. VELCADE [Suspect]
     Indication: MULTIPLE MYELOMA
     Dosage: 1.7 MG, INTRAVENOUS; 1.20 MG, INTRAVENOUS; 0.8MG, INTRAVENOUS
     Route: 042
     Dates: start: 20090309, end: 20090601
  4. DEXAMETHASONE TAB [Concomitant]
  5. OMEPRAZOLE [Concomitant]
  6. ITRACONAZOLE [Concomitant]
  7. SULFAMETHOXAZOLE AND TRIMETHOPRIM [Concomitant]
  8. ALLOPURINOL [Concomitant]

REACTIONS (12)
  - ALANINE AMINOTRANSFERASE INCREASED [None]
  - BLOOD BILIRUBIN INCREASED [None]
  - BLOOD CHLORIDE DECREASED [None]
  - DIARRHOEA [None]
  - HYPOAESTHESIA [None]
  - HYPOCHLORAEMIA [None]
  - HYPOKALAEMIA [None]
  - HYPONATRAEMIA [None]
  - PLATELET COUNT DECREASED [None]
  - PROTEIN TOTAL DECREASED [None]
  - PROTEINURIA [None]
  - PYREXIA [None]
